FAERS Safety Report 6881830-3 (Version None)
Quarter: 2010Q3

REPORT INFORMATION
  Report Type: 
  Country: None (occurrence: None)
  Receive Date: 20100727
  Receipt Date: 20100719
  Transmission Date: 20110219
  Serious: Yes (Other)
  Sender: FDA-Public Use
  Company Number: 2010SP031982

PATIENT
  Sex: Female

DRUGS (7)
  1. SAPHRIS [Suspect]
     Indication: BIPOLAR I DISORDER
     Dosage: 10 MG; BID; SL
     Route: 060
     Dates: start: 20100409
  2. SYNTHROID [Concomitant]
  3. NEXIUM [Concomitant]
  4. SINGULAIR [Concomitant]
  5. RANITIDINE /00550802/ [Concomitant]
  6. LYRICA [Concomitant]
  7. ALLEGRA [Concomitant]

REACTIONS (1)
  - BLOOD POTASSIUM DECREASED [None]
